FAERS Safety Report 25369341 (Version 1)
Quarter: 2025Q2

REPORT INFORMATION
  Report Type: Spontaneous
  Country: US (occurrence: US)
  Receive Date: 20250528
  Receipt Date: 20250528
  Transmission Date: 20250716
  Serious: No
  Sender: TEVA
  Company Number: US-TEVA-VS-3333387

PATIENT
  Age: 62 Year
  Sex: Male
  Weight: 90 kg

DRUGS (4)
  1. AJOVY [Suspect]
     Active Substance: FREMANEZUMAB-VFRM
     Indication: Migraine with aura
     Dosage: STRENGTH: 225/MG/1.5ML
     Route: 058
     Dates: start: 20250317
  2. AJOVY [Suspect]
     Active Substance: FREMANEZUMAB-VFRM
  3. FLOMAX [Concomitant]
     Active Substance: TAMSULOSIN HYDROCHLORIDE
     Indication: Product used for unknown indication
     Route: 065
  4. AVODART [Concomitant]
     Active Substance: DUTASTERIDE
     Indication: Product used for unknown indication
     Route: 065

REACTIONS (1)
  - Injection site pruritus [Unknown]

NARRATIVE: CASE EVENT DATE: 20250101
